FAERS Safety Report 8530743 (Version 4)
Quarter: 2014Q2

REPORT INFORMATION
  Report Type: Report from Study
  Country: US (occurrence: US)
  Receive Date: 20120425
  Receipt Date: 20140523
  Transmission Date: 20141212
  Serious: Yes (Hospitalization, Other)
  Sender: FDA-Public Use
  Company Number: US-ACTELION-A-US2012-64293

PATIENT
  Age: 54 Year
  Sex: Male

DRUGS (12)
  1. TRACLEER [Suspect]
     Indication: PULMONARY ARTERIAL HYPERTENSION
     Dosage: 125 MG, BID
     Route: 048
     Dates: start: 200711
  2. COUMADIN [Concomitant]
     Dosage: 2.5 MG, 4 TIMES PER WEEK
     Dates: start: 2007
  3. COUMADIN [Concomitant]
     Dosage: 1.25 MG, 3 TIMES PER WEEK
     Dates: start: 2007
  4. FUROSEMIDE [Concomitant]
     Dosage: 120 MG, DAILY
  5. ALLOPURINOL [Concomitant]
     Dosage: 100 MG, OD
     Dates: start: 2007
  6. PHENOBARBITAL [Concomitant]
     Dosage: 32.4 MG, 5 TABS DAILY
     Dates: start: 2007
  7. AMIODARONE [Concomitant]
     Dosage: 200 UNK, UNK
     Dates: start: 2007
  8. SENSIPAR [Concomitant]
     Dosage: 90 MG, BID
     Dates: start: 2007
  9. ZOLPIDEM [Concomitant]
     Dosage: 5 MG, QD
     Dates: start: 2007
  10. COLACE [Concomitant]
     Dosage: 100 MG, QD
     Dates: start: 2007
  11. LACTULOSE [Concomitant]
     Dosage: 30 ML, QD
     Dates: start: 201307
  12. HYDROCODONE/ACETAMINOPHEN [Concomitant]
     Dosage: 5/325 MG, PRN
     Dates: start: 201307

REACTIONS (18)
  - Cardiac disorder [Unknown]
  - Parathyroid tumour benign [Recovered/Resolved]
  - Blood calcium increased [Recovered/Resolved]
  - Blood calcium abnormal [Recovered/Resolved]
  - Blood calcium decreased [Recovered/Resolved]
  - Atrial fibrillation [Recovered/Resolved]
  - Heart rate irregular [Recovered/Resolved]
  - Heart rate increased [Recovered/Resolved]
  - Atrial flutter [Recovered/Resolved]
  - Renal failure chronic [Not Recovered/Not Resolved]
  - Renal impairment [Not Recovered/Not Resolved]
  - Blood creatinine increased [Not Recovered/Not Resolved]
  - Concomitant disease aggravated [Not Recovered/Not Resolved]
  - Sleep disorder [Unknown]
  - Constipation [Unknown]
  - Blood magnesium decreased [Unknown]
  - Blood potassium increased [Recovered/Resolved]
  - Blood thyroid stimulating hormone increased [Unknown]
